FAERS Safety Report 25046683 (Version 2)
Quarter: 2025Q1

REPORT INFORMATION
  Report Type: Spontaneous
  Country: US (occurrence: US)
  Receive Date: 20250306
  Receipt Date: 20250311
  Transmission Date: 20250409
  Serious: No
  Sender: Kenvue
  Company Number: US-KENVUE-20250201797

PATIENT
  Sex: Male

DRUGS (1)
  1. MENS ROGAINE EXTRA STRENGTH [Suspect]
     Active Substance: MINOXIDIL
     Indication: Androgenetic alopecia
     Route: 061

REACTIONS (5)
  - Seborrhoea [Unknown]
  - Incorrect dose administered [Unknown]
  - Poor quality product administered [Unknown]
  - Product container issue [Unknown]
  - Product formulation issue [Unknown]
